FAERS Safety Report 20979522 (Version 1)
Quarter: 2022Q2

REPORT INFORMATION
  Report Type: Spontaneous
  Country: US (occurrence: None)
  Receive Date: 20220620
  Receipt Date: 20220620
  Transmission Date: 20220721
  Serious: Yes (Hospitalization, Other)
  Sender: FDA-Public Use
  Company Number: US-ROCHE-2338164

PATIENT
  Sex: Female
  Weight: 92.162 kg

DRUGS (18)
  1. KLONOPIN [Suspect]
     Active Substance: CLONAZEPAM
     Indication: Anxiety
     Dosage: ONGOING:YES
     Route: 048
  2. OCREVUS [Suspect]
     Active Substance: OCRELIZUMAB
     Indication: Relapsing-remitting multiple sclerosis
     Dosage: ONGOING - NO
     Route: 042
  3. GABAPENTIN [Concomitant]
     Active Substance: GABAPENTIN
     Indication: Neuralgia
     Dosage: ONGOING:YES
     Route: 048
     Dates: start: 2006
  4. ACYCLOVIR [Concomitant]
     Active Substance: ACYCLOVIR
     Dosage: ONGOING:YES
     Route: 048
  5. ASPIRIN [Concomitant]
     Active Substance: ASPIRIN
     Dosage: ONGOING:YES
     Route: 048
     Dates: start: 2009
  6. CRESTOR [Concomitant]
     Active Substance: ROSUVASTATIN CALCIUM
     Dosage: ONGOING:YES
     Route: 048
  7. EFFIENT [Concomitant]
     Active Substance: PRASUGREL HYDROCHLORIDE
     Indication: Anticoagulant therapy
     Dosage: ONGOING:YES
     Route: 048
     Dates: start: 2009
  8. METOPROLOL [Concomitant]
     Active Substance: METOPROLOL
     Indication: Hypertension
     Dosage: ONGOING:YES
     Route: 048
     Dates: start: 2018
  9. ISOSORBIDE [Concomitant]
     Active Substance: ISOSORBIDE
     Indication: Angina pectoris
     Dosage: ONGOING:YES
     Dates: start: 2010
  10. PRIMIDONE [Concomitant]
     Active Substance: PRIMIDONE
     Indication: Tremor
     Dosage: ONGOING:YES
     Route: 048
     Dates: start: 2018
  11. PROTONIX [Concomitant]
     Active Substance: PANTOPRAZOLE SODIUM
     Dosage: ONGOING:YES
     Route: 048
     Dates: start: 2007
  12. SINGULAIR [Concomitant]
     Active Substance: MONTELUKAST SODIUM
     Indication: Hypersensitivity
     Dosage: ONGOING:YES
     Route: 048
     Dates: start: 2007
  13. SPIRONOLACTONE [Concomitant]
     Active Substance: SPIRONOLACTONE
     Indication: Blood pressure measurement
     Dosage: ONGOING:YES
     Route: 048
     Dates: start: 2011
  14. TRINTELLIX [Concomitant]
     Active Substance: VORTIOXETINE HYDROBROMIDE
     Dosage: ONGOING:YES
     Route: 048
     Dates: start: 2017
  15. ADVAIR HFA [Concomitant]
     Active Substance: FLUTICASONE PROPIONATE\SALMETEROL XINAFOATE
     Indication: Chronic obstructive pulmonary disease
     Dosage: 2 PUFFS A DAY ;ONGOING: YES
     Route: 048
     Dates: start: 2010
  16. VISTARIL [Concomitant]
     Active Substance: HYDROXYZINE PAMOATE
     Indication: Pruritus
     Dosage: AS NEEDED ;ONGOING: YES
     Route: 048
     Dates: start: 2016
  17. ZANAFLEX [Concomitant]
     Active Substance: TIZANIDINE HYDROCHLORIDE
     Indication: Multiple sclerosis
     Dosage: ONGOING:YES
     Route: 048
     Dates: start: 2008
  18. LEVOTHYROXINE [Concomitant]
     Active Substance: LEVOTHYROXINE
     Dosage: ONGOING:YES
     Route: 048
     Dates: start: 2017

REACTIONS (4)
  - Neoplasm progression [Not Recovered/Not Resolved]
  - Myocardial infarction [Unknown]
  - Chronic obstructive pulmonary disease [Unknown]
  - Angina pectoris [Not Recovered/Not Resolved]

NARRATIVE: CASE EVENT DATE: 20090101
